FAERS Safety Report 12958328 (Version 1)
Quarter: 2016Q4

REPORT INFORMATION
  Report Type: Spontaneous
  Country: US (occurrence: US)
  Receive Date: 20161121
  Receipt Date: 20161121
  Transmission Date: 20170207
  Serious: No
  Sender: FDA-Public Use
  Company Number: US-B.I. PHARMACEUTICALS,INC./RIDGEFIELD-2016-BI-077823

PATIENT
  Sex: Male

DRUGS (2)
  1. COMBIVENT [Suspect]
     Active Substance: ALBUTEROL SULFATE\IPRATROPIUM BROMIDE
     Indication: CHRONIC OBSTRUCTIVE PULMONARY DISEASE
     Dosage: FORM STRENGTH: 20 MCG / 100 MCG;
     Route: 055
     Dates: start: 2011
  2. XANAX [Concomitant]
     Active Substance: ALPRAZOLAM
     Indication: HYPERTENSION
     Dosage: TWO TABS PER DAY.
     Route: 048

REACTIONS (1)
  - Joint dislocation [Not Recovered/Not Resolved]

NARRATIVE: CASE EVENT DATE: 201608
